FAERS Safety Report 5353403-5 (Version None)
Quarter: 2007Q2

REPORT INFORMATION
  Report Type: 
  Country: None (occurrence: None)
  Receive Date: 20070612
  Receipt Date: 20070530
  Transmission Date: 20071010
  Serious: Yes (Hospitalization, Other)
  Sender: FDA-Public Use
  Company Number: PHBS2007KW09003

PATIENT
  Age: 51 Year
  Sex: Male

DRUGS (3)
  1. CYCLOSPORINE [Suspect]
     Indication: RENAL TRANSPLANT
     Dosage: UNK, UNK
     Route: 065
     Dates: start: 19930101
  2. AZATHIOPRINE [Suspect]
     Indication: RENAL TRANSPLANT
     Dates: start: 19930101
  3. PREDNISONE TAB [Suspect]
     Indication: RENAL TRANSPLANT
     Dates: start: 19930101

REACTIONS (20)
  - ABDOMINAL PAIN [None]
  - BONE PAIN [None]
  - CASTLEMAN'S DISEASE [None]
  - COAGULOPATHY [None]
  - COMPLICATIONS OF TRANSPLANTED KIDNEY [None]
  - HAEMATURIA [None]
  - HAEMODIALYSIS [None]
  - HYPERTENSION [None]
  - KIDNEY TRANSPLANT REJECTION [None]
  - LYMPHADENOPATHY [None]
  - MALIGNANT MELANOMA [None]
  - NEPHRECTOMY [None]
  - NIGHT SWEATS [None]
  - POSTOPERATIVE ABSCESS [None]
  - PYELONEPHRITIS ACUTE [None]
  - RENAL FAILURE CHRONIC [None]
  - RENAL IMPAIRMENT [None]
  - SKIN NEOPLASM EXCISION [None]
  - URINARY TRACT INFECTION [None]
  - WEIGHT DECREASED [None]
